FAERS Safety Report 12707798 (Version 2)
Quarter: 2016Q3

REPORT INFORMATION
  Report Type: Spontaneous
  Country: US (occurrence: US)
  Receive Date: 20160901
  Receipt Date: 20160922
  Transmission Date: 20161109
  Serious: Yes (Other)
  Sender: FDA-Public Use
  Company Number: US-SAOL THERAPEUTICS-2016SAO00475

PATIENT
  Age: 60 Year
  Sex: Female

DRUGS (7)
  1. GABLOFEN [Suspect]
     Active Substance: BACLOFEN
     Dosage: 950 UNK, UNK
     Route: 037
     Dates: start: 201608
  2. GABLOFEN [Suspect]
     Active Substance: BACLOFEN
     Dosage: 850 UNK, UNK
     Route: 037
  3. ALBUTEROL INHALER [Concomitant]
     Active Substance: ALBUTEROL
  4. KLOTRIX [Concomitant]
     Active Substance: POTASSIUM CHLORIDE
  5. GABLOFEN [Suspect]
     Active Substance: BACLOFEN
     Dosage: 900 ?G/ DAY
  6. HYDROCORTISONE. [Concomitant]
     Active Substance: HYDROCORTISONE
  7. EFFEXOR [Concomitant]
     Active Substance: VENLAFAXINE HYDROCHLORIDE

REACTIONS (3)
  - Clonus [Recovered/Resolved]
  - Central nervous system lymphoma [Unknown]
  - Device failure [Recovered/Resolved]

NARRATIVE: CASE EVENT DATE: 20160807
